FAERS Safety Report 16105294 (Version 1)
Quarter: 2019Q1

REPORT INFORMATION
  Report Type: Other
  Country: ES (occurrence: ES)
  Receive Date: 20190322
  Receipt Date: 20190322
  Transmission Date: 20190418
  Serious: Yes (Hospitalization, Other)
  Sender: FDA-Public Use
  Company Number: ES-APOTEX-2019AP009488

PATIENT
  Age: 95 Year
  Sex: Female

DRUGS (12)
  1. ATORVASTATINA                      /01326101/ [Concomitant]
     Active Substance: ATORVASTATIN
     Indication: PRODUCT USED FOR UNKNOWN INDICATION
     Dosage: 10 MG, QD
     Route: 048
  2. LYRICA [Concomitant]
     Active Substance: PREGABALIN
     Indication: PRODUCT USED FOR UNKNOWN INDICATION
     Dosage: 150 MG, BID
     Route: 048
  3. PALEXIA [Interacting]
     Active Substance: TAPENTADOL HYDROCHLORIDE
     Indication: SCIATICA
     Dosage: 50 MG, Q.12H
     Route: 048
     Dates: start: 20140626
  4. FOSFOMICINA                        /00552501/ [Concomitant]
     Active Substance: FOSFOMYCIN
     Indication: RESPIRATORY TRACT INFECTION
     Dosage: 3 G, QD
     Route: 048
     Dates: start: 20190109, end: 20190111
  5. VALSARTAN. [Concomitant]
     Active Substance: VALSARTAN
     Indication: PRODUCT USED FOR UNKNOWN INDICATION
     Dosage: 40 MG, QD
     Route: 048
  6. LEVOFLOXACINO [Concomitant]
     Active Substance: LEVOFLOXACIN
     Indication: RESPIRATORY TRACT INFECTION
     Dosage: 500 MG, QD
     Route: 048
     Dates: start: 20190104, end: 20190110
  7. FLUIDASA                           /00082801/ [Interacting]
     Active Substance: ACETYLCYSTEINE
     Indication: RESPIRATORY TRACT INFECTION
     Dosage: 5 ML, TID 5 MG/ML (1 BOTTLE OF 250 ML)
     Route: 048
     Dates: start: 20190104, end: 20190110
  8. VERSATIS [Concomitant]
     Active Substance: LIDOCAINE
     Indication: SCIATICA
     Dosage: UNK UNK, QD
     Route: 003
  9. TRAMADOL. [Suspect]
     Active Substance: TRAMADOL
     Indication: SCIATICA
     Dosage: 150 MG, Q.12H
     Route: 048
     Dates: start: 20180308, end: 20190110
  10. FUROSEMIDA                         /00032601/ [Concomitant]
     Active Substance: FUROSEMIDE
     Indication: PRODUCT USED FOR UNKNOWN INDICATION
     Dosage: 40 MG, QD
     Route: 048
  11. PANTOPRAZOL                        /01263201/ [Concomitant]
     Active Substance: PANTOPRAZOLE
     Indication: PRODUCT USED FOR UNKNOWN INDICATION
     Dosage: 40 MG, QD
     Route: 048
  12. METAMIZOL                          /06276701/ [Concomitant]
     Active Substance: METAMIZOLE
     Indication: SCIATICA
     Dosage: 575 MG, TID
     Route: 048

REACTIONS (1)
  - Coma [Recovered/Resolved]

NARRATIVE: CASE EVENT DATE: 20190110
